FAERS Safety Report 12355178 (Version 2)
Quarter: 2016Q2

REPORT INFORMATION
  Report Type: Spontaneous
  Country: US (occurrence: US)
  Receive Date: 20160511
  Receipt Date: 20160524
  Transmission Date: 20160815
  Serious: Yes (Life-Threatening, Hospitalization)
  Sender: FDA-Public Use
  Company Number: US-MYLANLABS-2016M1019612

PATIENT

DRUGS (1)
  1. DOXYCYCLINE. [Suspect]
     Active Substance: DOXYCYCLINE
     Indication: LYME DISEASE
     Route: 048

REACTIONS (2)
  - Multiple organ dysfunction syndrome [Recovered/Resolved]
  - Pancreatitis acute [Recovered/Resolved]
